FAERS Safety Report 6748517-9 (Version None)
Quarter: 2010Q2

REPORT INFORMATION
  Report Type: 
  Country: None (occurrence: None)
  Receive Date: 20100527
  Receipt Date: 20100527
  Transmission Date: 20101027
  Serious: No
  Sender: FDA-Public Use
  Company Number: None

PATIENT
  Sex: Male
  Weight: 113.3993 kg

DRUGS (2)
  1. NATEGLINIDE [Suspect]
     Indication: TYPE 2 DIABETES MELLITUS
     Dosage: 120 MG DAILY PO ABOUT 4 WEEKS
     Route: 048
     Dates: start: 20100418, end: 20100517
  2. NATEGLINIDE [Suspect]
     Indication: TYPE 2 DIABETES MELLITUS
     Dosage: 120 MG DAILY PO ABOUT FOUR WEEKS
     Route: 048
     Dates: start: 20100418, end: 20100517

REACTIONS (4)
  - DYSGEUSIA [None]
  - ORAL DISCOMFORT [None]
  - PRODUCT QUALITY ISSUE [None]
  - PRODUCT SUBSTITUTION ISSUE [None]
